FAERS Safety Report 16780544 (Version 2)
Quarter: 2020Q1

REPORT INFORMATION
  Report Type: Spontaneous
  Country: JP (occurrence: JP)
  Receive Date: 20190906
  Receipt Date: 20200127
  Transmission Date: 20200409
  Serious: Yes (Hospitalization)
  Sender: FDA-Public Use
  Company Number: JP-ELI_LILLY_AND_COMPANY-JP201908012329

PATIENT
  Age: 58 Year
  Sex: Male

DRUGS (3)
  1. OLUMIANT [Suspect]
     Active Substance: BARICITINIB
     Indication: RHEUMATOID ARTHRITIS
     Dosage: 2 MG, DAILY
     Route: 048
     Dates: start: 201906, end: 201907
  2. METHOTREXATE. [Concomitant]
     Active Substance: METHOTREXATE
     Dosage: 14 MG, DAILY
  3. PREDNISOLONE. [Concomitant]
     Active Substance: PREDNISOLONE
     Indication: ORGANISING PNEUMONIA

REACTIONS (1)
  - Immune reconstitution inflammatory syndrome [Recovering/Resolving]

NARRATIVE: CASE EVENT DATE: 201906
